FAERS Safety Report 17043424 (Version 1)
Quarter: 2019Q4

REPORT INFORMATION
  Report Type: Spontaneous
  Country: US (occurrence: US)
  Receive Date: 20191118
  Receipt Date: 20191118
  Transmission Date: 20200122
  Serious: No
  Sender: FDA-Public Use
  Company Number: US-THERAPEUTICSMD-2019TMD02539

PATIENT
  Age: 53 Year
  Sex: Female
  Weight: 53.97 kg

DRUGS (4)
  1. BIJUVA [Suspect]
     Active Substance: ESTRADIOL\PROGESTERONE
     Dosage: UNK, 1X/DAY IN THE MORNING
     Dates: start: 201907, end: 201907
  2. BIJUVA [Suspect]
     Active Substance: ESTRADIOL\PROGESTERONE
     Indication: HOT FLUSH
     Dosage: UNK, 1X/DAY AT NIGHT
     Dates: start: 201907, end: 201908
  3. BIJUVA [Suspect]
     Active Substance: ESTRADIOL\PROGESTERONE
     Dosage: UNK, 1X/DAY IN THE MORNING
     Dates: start: 201908
  4. AMBEREN OTC [Concomitant]
     Dosage: UNK, 1X/DAY IN THE MORNING

REACTIONS (5)
  - Product administration error [Recovered/Resolved]
  - Euphoric mood [Unknown]
  - Hypotension [Unknown]
  - Insomnia [Recovered/Resolved]
  - Fatigue [Not Recovered/Not Resolved]

NARRATIVE: CASE EVENT DATE: 201907
